APPROVED DRUG PRODUCT: DILANTIN
Active Ingredient: PHENYTOIN
Strength: 50MG
Dosage Form/Route: TABLET, CHEWABLE;ORAL
Application: A084427 | Product #001 | TE Code: AB
Applicant: PHARMACIA AND UPJOHN CO LLC
Approved: Approved Prior to Jan 1, 1982 | RLD: Yes | RS: Yes | Type: RX